FAERS Safety Report 6615862-7 (Version None)
Quarter: 2010Q1

REPORT INFORMATION
  Report Type: 
  Country: None (occurrence: None)
  Receive Date: 20100305
  Receipt Date: 20100222
  Transmission Date: 20100710
  Serious: No
  Sender: FDA-Public Use
  Company Number: US-JNJFOC-20090903203

PATIENT
  Sex: Male
  Weight: 68.04 kg

DRUGS (3)
  1. DURAGESIC-100 [Suspect]
     Indication: PAIN
     Route: 062
  2. DURAGESIC-100 [Suspect]
     Indication: DRUG USE FOR UNKNOWN INDICATION
     Route: 062
  3. UNKNOWN MEDICATION [Concomitant]
     Route: 065

REACTIONS (8)
  - APPLICATION SITE RASH [None]
  - DEVICE LEAKAGE [None]
  - FEELING ABNORMAL [None]
  - INAPPROPRIATE SCHEDULE OF DRUG ADMINISTRATION [None]
  - NASOPHARYNGITIS [None]
  - NAUSEA [None]
  - PAIN [None]
  - WRONG TECHNIQUE IN DRUG USAGE PROCESS [None]
